FAERS Safety Report 25390935 (Version 3)
Quarter: 2025Q4

REPORT INFORMATION
  Report Type: Spontaneous
  Country: US (occurrence: US)
  Receive Date: 20250603
  Receipt Date: 20251017
  Transmission Date: 20260118
  Serious: No
  Sender: ROCHE
  Company Number: US-ROCHE-10000301063

PATIENT
  Age: 1 Year
  Sex: Male

DRUGS (4)
  1. HEMLIBRA [Suspect]
     Active Substance: EMICIZUMAB-KXWH
     Indication: Factor VIII deficiency
     Dosage: STRENGTH- 12MG/0.4ML
     Route: 058
     Dates: start: 202501
  2. ALTUVIIIO INJECTION [Concomitant]
  3. VITAMINS [Concomitant]
     Active Substance: VITAMINS
  4. AMICAR PRN [Concomitant]

REACTIONS (1)
  - Head injury [Recovered/Resolved]

NARRATIVE: CASE EVENT DATE: 20250522
